FAERS Safety Report 7561277-7 (Version None)
Quarter: 2011Q2

REPORT INFORMATION
  Report Type: 
  Country: None (occurrence: None)
  Receive Date: 20110621
  Receipt Date: 20100503
  Transmission Date: 20111010
  Serious: No
  Sender: FDA-Public Use
  Company Number: US-ASTRAZENECA-2010SE20000

PATIENT
  Sex: Female

DRUGS (3)
  1. PULMICORT FLEXHALER [Suspect]
     Indication: ASTHMA
     Route: 055
     Dates: start: 20000101, end: 20100301
  2. QVAR 40 [Suspect]
     Dosage: DAILY
  3. PREDNISONE [Concomitant]

REACTIONS (4)
  - HEADACHE [None]
  - DRUG DOSE OMISSION [None]
  - MUSCULAR WEAKNESS [None]
  - ABDOMINAL PAIN UPPER [None]
